FAERS Safety Report 4501952-1 (Version None)
Quarter: 2004Q4

REPORT INFORMATION
  Report Type: 
  Country: None (occurrence: None)
  Receive Date: 20041116
  Receipt Date: 20041106
  Transmission Date: 20050328
  Serious: Yes (Death, Hospitalization)
  Sender: FDA-Public Use
  Company Number: US-AMGEN-US098628

PATIENT
  Sex: Female

DRUGS (2)
  1. NEULASTA [Suspect]
     Indication: CHEMOTHERAPY
  2. BLEOMYCIN [Concomitant]

REACTIONS (3)
  - DYSPNOEA [None]
  - PULMONARY TOXICITY [None]
  - PYREXIA [None]
